FAERS Safety Report 6413370-X (Version None)
Quarter: 2009Q4

REPORT INFORMATION
  Report Type: 
  Country: None (occurrence: None)
  Receive Date: 20091022
  Receipt Date: 20091022
  Transmission Date: 20100525
  Serious: Yes (Life-Threatening)
  Sender: FDA-Public Use
  Company Number: None

PATIENT
  Age: 54 Year
  Sex: Male
  Weight: 77.9 kg

DRUGS (1)
  1. LISINOPRIL [Suspect]
     Indication: HYPERTENSION
     Dosage: 60 MG EVERY DAY PO
     Route: 048
     Dates: start: 20080222, end: 20091021

REACTIONS (2)
  - ANGIOEDEMA [None]
  - TREATMENT NONCOMPLIANCE [None]
